FAERS Safety Report 5307963-0 (Version None)
Quarter: 2007Q2

REPORT INFORMATION
  Report Type: 
  Country: None (occurrence: None)
  Receive Date: 20070426
  Receipt Date: 20070417
  Transmission Date: 20071010
  Serious: Yes (Other)
  Sender: FDA-Public Use
  Company Number: 2006AP05517

PATIENT
  Age: 14078 Day
  Sex: Male

DRUGS (19)
  1. SEROQUEL [Suspect]
     Indication: SCHIZOPHRENIA
     Route: 048
     Dates: start: 20020807, end: 20060223
  2. SEROQUEL [Suspect]
     Route: 048
     Dates: start: 20060224, end: 20060301
  3. SEROQUEL [Suspect]
     Route: 048
     Dates: start: 20060302, end: 20060302
  4. SEROQUEL [Suspect]
     Route: 048
     Dates: start: 20060303, end: 20060402
  5. SEROQUEL [Suspect]
     Route: 048
     Dates: start: 20060403, end: 20060412
  6. SEROQUEL [Suspect]
     Route: 048
     Dates: start: 20060413, end: 20060419
  7. SEROQUEL [Suspect]
     Route: 048
     Dates: start: 20060420, end: 20060426
  8. CONTOMIN [Suspect]
     Route: 048
     Dates: start: 20060302, end: 20060305
  9. CONTOMIN [Suspect]
     Route: 048
     Dates: start: 20060306, end: 20060322
  10. CONTOMIN [Suspect]
     Route: 048
     Dates: start: 20060323, end: 20060426
  11. ZYPREXA [Suspect]
     Route: 048
     Dates: start: 20060330, end: 20060416
  12. ZYPREXA [Suspect]
     Route: 048
     Dates: start: 20060417
  13. AKINETON [Concomitant]
     Route: 048
     Dates: start: 20051207, end: 20060301
  14. AKINETON [Concomitant]
     Route: 048
     Dates: start: 20060302, end: 20060312
  15. AKINETON [Concomitant]
     Route: 048
     Dates: start: 20060313, end: 20060514
  16. AKINETON [Concomitant]
     Route: 048
     Dates: start: 20060515
  17. ROHYPNOL [Concomitant]
     Route: 048
     Dates: start: 20060306
  18. YODEL S [Concomitant]
     Route: 048
     Dates: start: 20060313
  19. MAGMITT [Concomitant]
     Route: 048
     Dates: start: 20060308

REACTIONS (1)
  - PAROXYSMAL PERCEPTUAL ALTERATION [None]
